FAERS Safety Report 24402200 (Version 1)
Quarter: 2024Q4

REPORT INFORMATION
  Report Type: Other
  Country: FR (occurrence: FR)
  Receive Date: 20241007
  Receipt Date: 20241007
  Transmission Date: 20250114
  Serious: Yes (Hospitalization)
  Sender: ZYDUS PHARM
  Company Number: None

PATIENT

DRUGS (5)
  1. TRAMADOL [Suspect]
     Active Substance: TRAMADOL
     Indication: Migraine
     Dosage: 100 MILLIGRAM, 1 TOTAL
     Route: 048
     Dates: start: 20240318, end: 20240318
  2. ACUPAN [Suspect]
     Active Substance: NEFOPAM HYDROCHLORIDE
     Indication: Migraine
     Dosage: 20 MILLIGRAM, 1 TOTAL
     Route: 042
     Dates: start: 20240318, end: 20240318
  3. PREDNISOLONE [Suspect]
     Active Substance: PREDNISOLONE
     Indication: Migraine
     Dosage: 1 MILLIGRAM/KILOGRAM, 1 TOTAL
     Route: 042
     Dates: start: 20240318, end: 20240318
  4. PRIMPERAN [Suspect]
     Active Substance: METOCLOPRAMIDE HYDROCHLORIDE
     Indication: Vomiting
     Dosage: 1 DOSAGE FORM, 1 TOTAL
     Route: 042
     Dates: start: 20240318, end: 20240318
  5. ASPIRIN DL-LYSINE [Suspect]
     Active Substance: ASPIRIN DL-LYSINE
     Indication: Migraine
     Dosage: 1000 MILLIGRAM, 1 TOTAL
     Route: 048
     Dates: start: 20240318, end: 20240318

REACTIONS (4)
  - Hyponatraemia [Recovered/Resolved]
  - Brain oedema [Recovered/Resolved]
  - Status epilepticus [Recovering/Resolving]
  - Epilepsy [Recovered/Resolved]

NARRATIVE: CASE EVENT DATE: 20240320
